FAERS Safety Report 17348063 (Version 1)
Quarter: 2020Q1

REPORT INFORMATION
  Report Type: Spontaneous
  Country: US (occurrence: US)
  Receive Date: 20200115
  Receipt Date: 20200115
  Transmission Date: 20200409
  Serious: Yes (Hospitalization, Other)
  Sender: FDA-Public Use
  Company Number: None

PATIENT
  Age: 52 Year
  Sex: Female
  Weight: 76.1 kg

DRUGS (20)
  1. CARBONATE [Concomitant]
  2. IBUPROFEN. [Concomitant]
     Active Substance: IBUPROFEN
  3. VITAMIN C [Concomitant]
     Active Substance: ASCORBIC ACID
  4. CALCIUM [Concomitant]
     Active Substance: CALCIUM
  5. ADRIMYCIN/CYTOXAN [Suspect]
     Active Substance: CYCLOPHOSPHAMIDE\DOXORUBICIN
     Indication: BREAST CANCER
     Route: 042
     Dates: start: 20190305, end: 20190416
  6. MOM [Concomitant]
     Active Substance: MAGNESIUM HYDROXIDE
  7. NO DRUG NAME [Concomitant]
  8. IMFINZI [Suspect]
     Active Substance: DURVALUMAB
     Indication: BREAST CANCER
     Route: 042
     Dates: start: 20181127, end: 20190219
  9. VITAMIN E1 [Concomitant]
  10. VITAMIN B6 [Concomitant]
     Active Substance: PYRIDOXINE HYDROCHLORIDE
  11. EMAL CREAM TO PORT [Concomitant]
  12. CHROMIUM [Concomitant]
     Active Substance: CHROMIC CHLORIDE\CHROMIUM
  13. ZYRTEC [Concomitant]
     Active Substance: CETIRIZINE HYDROCHLORIDE
  14. ROBATUSSIN [Concomitant]
  15. LEVOTHYROXINE. [Concomitant]
     Active Substance: LEVOTHYROXINE
  16. VITAMIN D3 [Concomitant]
     Active Substance: CHOLECALCIFEROL
  17. PREDNISONE TAPER NOW [Concomitant]
  18. FISH OIL [Concomitant]
     Active Substance: FISH OIL
  19. MIRALAX [Concomitant]
     Active Substance: POLYETHYLENE GLYCOL 3350
  20. PRILOSEC [Concomitant]
     Active Substance: OMEPRAZOLE MAGNESIUM

REACTIONS (17)
  - Syncope [None]
  - Presyncope [None]
  - Pneumonitis [None]
  - Productive cough [None]
  - Parainfluenzae virus infection [None]
  - Hypophagia [None]
  - Orthostatic intolerance [None]
  - Upper respiratory tract infection [None]
  - Fall [None]
  - Contusion [None]
  - Neutropenia [None]
  - Cardiac disorder [None]
  - Head injury [None]
  - Pyrexia [None]
  - Lip injury [None]
  - Dizziness [None]
  - Arrhythmia [None]

NARRATIVE: CASE EVENT DATE: 20190430
